FAERS Safety Report 5222891-7 (Version None)
Quarter: 2007Q1

REPORT INFORMATION
  Report Type: 
  Country: None (occurrence: None)
  Receive Date: 20070124
  Receipt Date: 20070109
  Transmission Date: 20070707
  Serious: Yes (Hospitalization)
  Sender: FDA-Public Use
  Company Number: S07-FRA-00242-01

PATIENT
  Age: 72 Year
  Sex: Female

DRUGS (6)
  1. SEROPLEX (ESCITALOPRAM) [Suspect]
     Indication: DYSTHYMIC DISORDER
     Dates: end: 20061118
  2. ALDACTAZINE [Suspect]
     Indication: HYPERTENSION
     Dates: end: 20061118
  3. TEGRETOL [Suspect]
     Indication: EPILEPSY
     Dates: end: 20061118
  4. RISPERDAL [Suspect]
     Indication: PSYCHOTIC DISORDER
     Dosage: 2 MG BID PO
     Route: 048
     Dates: end: 20061118
  5. HYZAAR [Suspect]
     Indication: HYPERTENSION
     Dates: end: 20061118
  6. SELECTOL (CELIPROLOL HYDROCHLORIDE) [Concomitant]

REACTIONS (2)
  - FALL [None]
  - HYPONATRAEMIA [None]
